FAERS Safety Report 9607916 (Version 1)
Quarter: 2013Q4

REPORT INFORMATION
  Report Type: Spontaneous
  Country: US (occurrence: US)
  Receive Date: 20131009
  Receipt Date: 20131009
  Transmission Date: 20140711
  Serious: No
  Sender: FDA-Public Use
  Company Number: US-009507513-1309USA004508

PATIENT
  Age: 50 Year
  Sex: Female

DRUGS (2)
  1. TEMODAR [Suspect]
     Indication: NEOPLASM MALIGNANT
     Dosage: ONE 180 MG TABLET AND ONE 250 MG TABLET ONCE DAILY FOR 5 CONSECUTIVE DAYS ONCE A MONTH
     Route: 048
     Dates: start: 201302
  2. ONDANSETRON HYDROCHLORIDE [Concomitant]

REACTIONS (1)
  - Weight increased [Not Recovered/Not Resolved]
